FAERS Safety Report 17100397 (Version 1)
Quarter: 2019Q4

REPORT INFORMATION
  Report Type: Spontaneous
  Country: FI (occurrence: FI)
  Receive Date: 20191202
  Receipt Date: 20191202
  Transmission Date: 20200122
  Serious: Yes (Life-Threatening)
  Sender: FDA-Public Use
  Company Number: FI-GUERBET-FI-20190006

PATIENT
  Age: 55 Year
  Sex: Female

DRUGS (3)
  1. DOTAREM [Suspect]
     Active Substance: GADOTERATE MEGLUMINE
     Indication: MAGNETIC RESONANCE IMAGING
     Route: 042
     Dates: start: 20191022, end: 20191022
  2. THYROXIN [Concomitant]
     Active Substance: LEVOTHYROXINE
     Indication: PRODUCT USED FOR UNKNOWN INDICATION
     Route: 065
  3. DOTAREM [Suspect]
     Active Substance: GADOTERATE MEGLUMINE
     Dosage: 10,ML,X1
     Dates: start: 20191022, end: 20191022

REACTIONS (6)
  - Tongue oedema [Recovering/Resolving]
  - Muscular weakness [Recovering/Resolving]
  - Localised oedema [Recovering/Resolving]
  - Malaise [Recovering/Resolving]
  - Urticaria [Recovering/Resolving]
  - Heart rate increased [Recovering/Resolving]

NARRATIVE: CASE EVENT DATE: 20191022
